FAERS Safety Report 23656805 (Version 1)
Quarter: 2024Q1

REPORT INFORMATION
  Report Type: Spontaneous
  Country: US (occurrence: US)
  Receive Date: 20240321
  Receipt Date: 20240321
  Transmission Date: 20240410
  Serious: No
  Sender: FDA-Public Use
  Company Number: US-BAYER-2024A027936

PATIENT
  Age: 69 Year
  Sex: Female

DRUGS (4)
  1. CLARITIN [Suspect]
     Active Substance: LORATADINE
     Indication: Hypersensitivity
     Dosage: ONE TO TWO TABLETS A DAY
     Dates: start: 202402, end: 20240220
  2. CLARITIN [Suspect]
     Active Substance: LORATADINE
     Indication: Nasopharyngitis
  3. CLARITIN [Suspect]
     Active Substance: LORATADINE
     Indication: Allergy to animal
  4. CLARITIN [Suspect]
     Active Substance: LORATADINE
     Indication: Pruritus

REACTIONS (2)
  - Drug ineffective [Recovering/Resolving]
  - Incorrect dose administered [Recovering/Resolving]

NARRATIVE: CASE EVENT DATE: 20240201
